FAERS Safety Report 20920338 (Version 3)
Quarter: 2022Q2

REPORT INFORMATION
  Report Type: Spontaneous
  Country: JP (occurrence: JP)
  Receive Date: 20220606
  Receipt Date: 20220621
  Transmission Date: 20220721
  Serious: Yes (Death, Hospitalization, Other)
  Sender: FDA-Public Use
  Company Number: JP-AMERICAN REGENT INC-2022001536

PATIENT
  Age: 85 Year
  Sex: Female

DRUGS (4)
  1. FERINJECT [Suspect]
     Active Substance: FERRIC CARBOXYMALTOSE
     Indication: Iron deficiency anaemia
     Dosage: 500 MILLIGRAM, SINGLE
     Dates: start: 20220104, end: 20220104
  2. CADUET [Concomitant]
     Active Substance: AMLODIPINE BESYLATE\ATORVASTATIN CALCIUM
     Indication: Hypertension
     Dosage: UNK
     Route: 048
     Dates: start: 20160229
  3. AMLODIPINE BESYLATE\AZILSARTAN [Concomitant]
     Active Substance: AMLODIPINE BESYLATE\AZILSARTAN
     Indication: Hypertension
     Dosage: UNK
     Route: 048
  4. LASIX [Concomitant]
     Active Substance: FUROSEMIDE
     Indication: Nephrogenic anaemia
     Dosage: UNK
     Route: 048

REACTIONS (7)
  - Gastric ulcer haemorrhage [Fatal]
  - Haematemesis [Unknown]
  - Condition aggravated [Unknown]
  - Decreased appetite [Unknown]
  - Oedema [Unknown]
  - Infusion site extravasation [Not Recovered/Not Resolved]
  - Infusion site discolouration [Unknown]

NARRATIVE: CASE EVENT DATE: 20220101
